FAERS Safety Report 8070152-3 (Version None)
Quarter: 2012Q1

REPORT INFORMATION
  Report Type: 
  Country: None (occurrence: None)
  Receive Date: 20120125
  Receipt Date: 20120117
  Transmission Date: 20120608
  Serious: Yes (Other)
  Sender: FDA-Public Use
  Company Number: DE-PFIZER INC-2012013890

PATIENT
  Age: 75 Year
  Sex: Male

DRUGS (14)
  1. PENTAERYTHRITOL TETRANITRATE [Concomitant]
     Dosage: UNK
  2. DICLOFENAC [Concomitant]
  3. CARVEDILOL [Concomitant]
     Dosage: 6.25 MG, 4X/DAY
  4. MOXONIDINE [Concomitant]
     Dosage: 4 MG, 2X/DAY
  5. LOPERAMIDE [Concomitant]
  6. LOMOTIL [Concomitant]
  7. CRATAEGUS [Concomitant]
     Dosage: 450 MG, 2X/DAY
  8. PREDNISOLONE [Concomitant]
     Dosage: 30 MG, UNK
  9. TAMSULOSIN [Concomitant]
     Dosage: UNK
  10. TOVIAZ [Suspect]
     Dosage: UNK
     Dates: start: 20111212, end: 20120110
  11. TIM-OPHTAL [Concomitant]
  12. FINASTERIDE [Concomitant]
  13. LERCANIDIPINE [Concomitant]
  14. AGIOCUR [Concomitant]

REACTIONS (1)
  - INTRAOCULAR PRESSURE INCREASED [None]
